FAERS Safety Report 7611727-2 (Version None)
Quarter: 2011Q3

REPORT INFORMATION
  Report Type: 
  Country: None (occurrence: None)
  Receive Date: 20110715
  Receipt Date: 20110705
  Transmission Date: 20111222
  Serious: Yes (Hospitalization)
  Sender: FDA-Public Use
  Company Number: IL-SANOFI-AVENTIS-2011SA043784

PATIENT
  Age: 82 Year
  Sex: Female
  Weight: 60 kg

DRUGS (6)
  1. ASPIRIN [Concomitant]
  2. SIMVASTATIN [Concomitant]
  3. FUROSEMIDE [Concomitant]
  4. DRONEDARONE HCL [Suspect]
     Indication: ATRIAL FIBRILLATION
     Route: 048
     Dates: start: 20101209, end: 20101212
  5. NIFEDIPINE [Concomitant]
  6. CLOPIDOGREL [Concomitant]

REACTIONS (6)
  - CEREBRAL HAEMORRHAGE [None]
  - ABASIA [None]
  - VOMITING [None]
  - NAUSEA [None]
  - ABDOMINAL PAIN [None]
  - ISCHAEMIC STROKE [None]
